FAERS Safety Report 10477189 (Version 2)
Quarter: 2014Q4

REPORT INFORMATION
  Report Type: Spontaneous
  Country: US (occurrence: US)
  Receive Date: 20140926
  Receipt Date: 20141020
  Transmission Date: 20150528
  Serious: Yes (Hospitalization)
  Sender: FDA-Public Use
  Company Number: US-UNITED THERAPEUTICS-UNT-2014-007735

PATIENT
  Sex: Female
  Weight: 61.22 kg

DRUGS (2)
  1. REMODULIN [Suspect]
     Active Substance: TREPROSTINIL
     Indication: COR PULMONALE CHRONIC
     Dosage: 0.026 ?G/KG, CONTINUING
     Route: 058
     Dates: start: 20140512
  2. COUMADIN [Concomitant]
     Active Substance: WARFARIN SODIUM
     Indication: PRODUCT USED FOR UNKNOWN INDICATION

REACTIONS (9)
  - Nausea [Recovering/Resolving]
  - Dyspnoea [Unknown]
  - Oedema [Recovering/Resolving]
  - Vomiting [Recovering/Resolving]
  - Headache [Recovering/Resolving]
  - Pulmonary vascular disorder [Unknown]
  - Dizziness [Recovering/Resolving]
  - No therapeutic response [Unknown]
  - Asthenia [Unknown]

NARRATIVE: CASE EVENT DATE: 2014
